FAERS Safety Report 22057840 (Version 2)
Quarter: 2024Q1

REPORT INFORMATION
  Report Type: Report from Study
  Country: US (occurrence: US)
  Receive Date: 20230303
  Receipt Date: 20240227
  Transmission Date: 20240409
  Serious: No
  Sender: FDA-Public Use
  Company Number: US-ORG100014127-2022001392

PATIENT
  Age: 33 Year
  Sex: Female

DRUGS (2)
  1. METOPIRONE [Suspect]
     Active Substance: METYRAPONE
     Indication: Cushing^s syndrome
     Route: 048
     Dates: end: 2022
  2. LYSODREN [Suspect]
     Active Substance: MITOTANE
     Indication: Adrenal gland cancer
     Dosage: 03 TABLETS TID
     Route: 048
     Dates: start: 20221101, end: 20230131

REACTIONS (3)
  - Fatigue [Unknown]
  - Nausea [Unknown]
  - Off label use [Recovered/Resolved]
